FAERS Safety Report 5644076-2 (Version None)
Quarter: 2008Q1

REPORT INFORMATION
  Report Type: 
  Country: None (occurrence: None)
  Receive Date: 20080226
  Receipt Date: 20080215
  Transmission Date: 20080703
  Serious: Yes (Death)
  Sender: FDA-Public Use
  Company Number: B0508474A

PATIENT
  Age: 53 Year
  Sex: Female

DRUGS (2)
  1. PAXIL [Suspect]
     Indication: DEPRESSION
     Dosage: 10 MG/PER DAY/ORAL
     Route: 048
  2. HYPNOTIC [Concomitant]

REACTIONS (1)
  - COMPLETED SUICIDE [None]
